FAERS Safety Report 12631513 (Version 2)
Quarter: 2016Q3

REPORT INFORMATION
  Report Type: Spontaneous
  Country: US (occurrence: US)
  Receive Date: 20160808
  Receipt Date: 20160808
  Transmission Date: 20161109
  Serious: No
  Sender: FDA-Public Use
  Company Number: US-BEH-2015054396

PATIENT
  Sex: Female
  Weight: 68 kg

DRUGS (16)
  1. AMBIEN [Concomitant]
     Active Substance: ZOLPIDEM TARTRATE
  2. PROTONIX [Concomitant]
     Active Substance: PANTOPRAZOLE SODIUM
  3. HIZENTRA [Suspect]
     Active Substance: HUMAN IMMUNOGLOBULIN G
     Indication: HYPER IGM SYNDROME
     Dosage: 2 GM 10 ML VIAL
     Route: 058
  4. HIZENTRA [Suspect]
     Active Substance: HUMAN IMMUNOGLOBULIN G
     Indication: HYPOGAMMAGLOBULINAEMIA
     Dosage: 4 GM 20 ML VIAL
     Route: 058
  5. DORZOLAMIDE [Concomitant]
     Active Substance: DORZOLAMIDE
  6. VITAMIN D [Concomitant]
     Active Substance: CHOLECALCIFEROL
  7. CALCIUM [Concomitant]
     Active Substance: CALCIUM
  8. VITAMIN B [Concomitant]
     Active Substance: VITAMIN B
  9. LATANOPROST. [Concomitant]
     Active Substance: LATANOPROST
  10. TURMERIC [Concomitant]
     Active Substance: TURMERIC
  11. MAGNESIUM [Concomitant]
     Active Substance: MAGNESIUM
  12. IRON [Concomitant]
     Active Substance: IRON
  13. XALATAN [Concomitant]
     Active Substance: LATANOPROST
  14. ALPHAGAN P [Concomitant]
     Active Substance: BRIMONIDINE TARTRATE
  15. PROGESTERONE. [Concomitant]
     Active Substance: PROGESTERONE
  16. LEXAPRO [Concomitant]
     Active Substance: ESCITALOPRAM OXALATE

REACTIONS (2)
  - Swelling [Recovered/Resolved]
  - Erythema [Recovered/Resolved]
